FAERS Safety Report 4871777-6 (Version None)
Quarter: 2006Q1

REPORT INFORMATION
  Report Type: 
  Country: None (occurrence: None)
  Receive Date: 20060104
  Receipt Date: 20051209
  Transmission Date: 20060701
  Serious: Yes (Hospitalization)
  Sender: FDA-Public Use
  Company Number: PHBS2005JP18337

PATIENT
  Age: 82 Year
  Sex: Female

DRUGS (4)
  1. DIOVAN [Suspect]
     Route: 048
  2. MEXITIL [Concomitant]
  3. BASEN [Concomitant]
     Route: 048
  4. MAGLAX [Concomitant]
     Route: 048

REACTIONS (3)
  - LYMPHOCYTE STIMULATION TEST POSITIVE [None]
  - PEMPHIGUS [None]
  - SKIN ULCER [None]
